FAERS Safety Report 10024757 (Version 3)
Quarter: 2014Q2

REPORT INFORMATION
  Report Type: Spontaneous
  Country: US (occurrence: US)
  Receive Date: 20140320
  Receipt Date: 20140630
  Transmission Date: 20141212
  Serious: Yes (Other)
  Sender: FDA-Public Use
  Company Number: US-PFIZER INC-2014074872

PATIENT
  Age: 45 Year
  Sex: Female
  Weight: 62 kg

DRUGS (4)
  1. LIPITOR [Suspect]
     Indication: LOW DENSITY LIPOPROTEIN INCREASED
     Dosage: 50 MG, 1X/DAY
     Route: 048
     Dates: start: 200602
  2. LIPITOR [Suspect]
     Indication: CARDIOVASCULAR EVENT PROPHYLAXIS
  3. URSODIOL [Concomitant]
     Indication: BILIARY CIRRHOSIS
     Dosage: 500 MG, DAILY
     Dates: start: 2002
  4. TRICOR [Concomitant]
     Indication: BLOOD CHOLESTEROL INCREASED
     Dosage: 145 MG, 1X/DAY
     Dates: start: 200602

REACTIONS (1)
  - Type 2 diabetes mellitus [Not Recovered/Not Resolved]
